FAERS Safety Report 10845486 (Version 1)
Quarter: 2015Q1

REPORT INFORMATION
  Report Type: Spontaneous
  Country: US (occurrence: US)
  Receive Date: 20150220
  Receipt Date: 20150220
  Transmission Date: 20150721
  Serious: No
  Sender: FDA-Public Use
  Company Number: US-BANPHARM-20143012

PATIENT
  Age: 68 Year
  Sex: Female

DRUGS (4)
  1. CELEBREX [Concomitant]
     Active Substance: CELECOXIB
  2. XANAX [Concomitant]
     Active Substance: ALPRAZOLAM
  3. LOMUSTINE. [Concomitant]
     Active Substance: LOMUSTINE
  4. NIMODIPINE CAPSULES 30 MG [Suspect]
     Active Substance: NIMODIPINE
     Indication: OFF LABEL USE
     Dosage: 1 DF, QID,
     Route: 048
     Dates: start: 201407

REACTIONS (3)
  - Off label use [Unknown]
  - Depression [Recovered/Resolved]
  - Dizziness [Not Recovered/Not Resolved]
